FAERS Safety Report 9998968 (Version 1)
Quarter: 2014Q1

REPORT INFORMATION
  Report Type: Spontaneous
  Country: US (occurrence: None)
  Receive Date: 20140311
  Receipt Date: 20140311
  Transmission Date: 20141002
  Serious: Yes (Other)
  Sender: FDA-Public Use
  Company Number: None

PATIENT
  Age: 54 Year
  Sex: Female
  Weight: 123.38 kg

DRUGS (2)
  1. EFFEXOR XR 75MG [Suspect]
     Indication: DEPRESSION
     Dosage: 3 CAPSULE DAILY
  2. EFFEXOR XR 75MG [Suspect]
     Indication: ANXIETY
     Dosage: 3 CAPSULE DAILY

REACTIONS (2)
  - Product substitution issue [None]
  - Condition aggravated [None]
